FAERS Safety Report 10973783 (Version 1)
Quarter: 2015Q1

REPORT INFORMATION
  Report Type: Spontaneous
  Country: None (occurrence: None)
  Receive Date: 20150226
  Receipt Date: 20150226
  Transmission Date: 20150721
  Serious: No
  Sender: FDA-Public Use
  Company Number: TPA2009A04016

PATIENT
  Age: 55 Year
  Sex: Male
  Weight: 129.28 kg

DRUGS (7)
  1. HYOMAX (ALL OTHER THERAPEUTIC PRODUCTS) [Concomitant]
  2. RANITIDINE [Concomitant]
     Active Substance: RANITIDINE\RANITIDINE HYDROCHLORIDE
  3. LYRICA [Concomitant]
     Active Substance: PREGABALIN
  4. VITAMIN B12 [Concomitant]
     Active Substance: CYANOCOBALAMIN
  5. ULORIC [Suspect]
     Active Substance: FEBUXOSTAT
     Indication: BLOOD URIC ACID INCREASED
     Dosage: 40 MG, QHS, PER ORAL
     Route: 048
     Dates: start: 200911, end: 200911
  6. POTASSIUM [Concomitant]
     Active Substance: POTASSIUM
  7. COLCHICINE. [Concomitant]
     Active Substance: COLCHICINE

REACTIONS (6)
  - Malaise [None]
  - Abdominal discomfort [None]
  - Renal pain [None]
  - Pollakiuria [None]
  - Gout [None]
  - Nausea [None]

NARRATIVE: CASE EVENT DATE: 200911
